FAERS Safety Report 17898005 (Version 4)
Quarter: 2020Q3

REPORT INFORMATION
  Report Type: Spontaneous
  Country: US (occurrence: US)
  Receive Date: 20200616
  Receipt Date: 20200710
  Transmission Date: 20201103
  Serious: No
  Sender: FDA-Public Use
  Company Number: US-009507513-2006USA005375

PATIENT
  Age: 22 Year
  Sex: Female

DRUGS (1)
  1. NEXPLANON [Suspect]
     Active Substance: ETONOGESTREL
     Indication: CONTRACEPTION
     Dosage: 1 ROD, LEFT UPPER ARM
     Route: 059
     Dates: start: 2014

REACTIONS (3)
  - Incorrect product administration duration [Unknown]
  - Complication associated with device [Recovered/Resolved]
  - Complication of device removal [Not Recovered/Not Resolved]

NARRATIVE: CASE EVENT DATE: 2017
